FAERS Safety Report 5284449-3 (Version None)
Quarter: 2007Q2

REPORT INFORMATION
  Report Type: 
  Country: None (occurrence: None)
  Receive Date: 20070403
  Receipt Date: 20070328
  Transmission Date: 20071010
  Serious: Yes (Hospitalization)
  Sender: FDA-Public Use
  Company Number: 2007UW06337

PATIENT
  Age: 48 Year
  Sex: Female

DRUGS (1)
  1. NEXIUM [Suspect]
     Route: 048
     Dates: start: 20070314, end: 20070314

REACTIONS (2)
  - CHOKING [None]
  - PRURITUS [None]
